FAERS Safety Report 8979016 (Version 1)
Quarter: 2012Q4

REPORT INFORMATION
  Report Type: Spontaneous
  Country: US (occurrence: None)
  Receive Date: 20121218
  Receipt Date: 20121218
  Transmission Date: 20130627
  Serious: No
  Sender: FDA-Public Use
  Company Number: None

PATIENT
  Age: 61 Year
  Sex: Male
  Weight: 135.2 kg

DRUGS (1)
  1. OLANZAPINE [Suspect]
     Dosage: 7.5 MG   AT BEDTIME   PO
     Route: 048
     Dates: start: 20020709, end: 20120804

REACTIONS (2)
  - Weight increased [None]
  - Hyperglycaemia [None]
